FAERS Safety Report 6759935-7 (Version None)
Quarter: 2010Q2

REPORT INFORMATION
  Report Type: 
  Country: None (occurrence: None)
  Receive Date: 20100608
  Receipt Date: 20100602
  Transmission Date: 20101027
  Serious: Yes (Death, Hospitalization)
  Sender: FDA-Public Use
  Company Number: AT-BAYER-201021037GPV

PATIENT
  Age: 61 Year
  Sex: Male

DRUGS (12)
  1. ALEMTUZUMAB [Suspect]
     Indication: T-CELL LYMPHOMA
     Dosage: A-CHOP-14, TREATMENT DAYS 1 AND 2 IN CYCLES 2 TO 6
     Route: 058
     Dates: start: 20100107, end: 20100108
  2. ALEMTUZUMAB [Suspect]
     Dosage: A-CHOP-14, TREATMENT DAYS 1 AND 2 IN CYCLES 2 TO 6
     Route: 058
     Dates: start: 20100222, end: 20100223
  3. PREDNISONE [Suspect]
     Indication: T-CELL LYMPHOMA
     Dosage: A-CHOP-14, TREATMENT DAYS 1-5  PER CYCLE
     Route: 048
     Dates: start: 20100107, end: 20100111
  4. PREDNISONE [Suspect]
     Dosage: A-CHOP-14, TREATMENT DAYS 1-5  PER CYCLE
     Route: 048
     Dates: start: 20100222, end: 20100226
  5. CYCLOPHOSPHAMIDE [Suspect]
     Indication: T-CELL LYMPHOMA
     Dosage: A-CHOP-14, TREATMENT DAY 1 PER CYCLE
     Route: 042
     Dates: start: 20100107, end: 20100107
  6. CYCLOPHOSPHAMIDE [Suspect]
     Dosage: A-CHOP-14, TREATMENT DAY 1 PER CYCLE
     Route: 042
     Dates: start: 20100222, end: 20100222
  7. DOXORUBICIN HCL [Suspect]
     Indication: T-CELL LYMPHOMA
     Dosage: A-CHOP-14, TREATMENT DAY 1 PER CYCLE
     Route: 042
     Dates: start: 20100222, end: 20100222
  8. DOXORUBICIN HCL [Suspect]
     Dosage: A-CHOP-14, TREATMENT DAY 1 PER CYCLE
     Route: 042
     Dates: start: 20100107, end: 20100107
  9. VINCRISTINE [Suspect]
     Indication: T-CELL LYMPHOMA
     Dosage: A-CHOP-14, TREATMENT DAY 1 PER CYCLE
     Route: 042
     Dates: start: 20100107, end: 20100107
  10. VINCRISTINE [Suspect]
     Dosage: A-CHOP-14, TREATMENT DAY 1 PER CYCLE
     Route: 042
     Dates: start: 20100222, end: 20100222
  11. PEGFILGRASTIM [Suspect]
     Indication: T-CELL LYMPHOMA
     Route: 058
     Dates: start: 20100301, end: 20100301
  12. PEGFILGRASTIM [Suspect]
     Route: 058

REACTIONS (3)
  - INTERSTITIAL LUNG DISEASE [None]
  - ORGANISING PNEUMONIA [None]
  - RESPIRATORY DISTRESS [None]
